FAERS Safety Report 10642286 (Version 1)
Quarter: 2014Q4

REPORT INFORMATION
  Report Type: Spontaneous
  Country: US (occurrence: None)
  Receive Date: 20141121
  Receipt Date: 20141121
  Transmission Date: 20150529
  Serious: No
  Sender: FDA-Public Use
  Company Number: 163-10004-14085269

PATIENT
  Age: 59 Year
  Sex: Female

DRUGS (8)
  1. TRAZODONE [Concomitant]
     Active Substance: TRAZODONE HYDROCHLORIDE
  2. SINGULAIR [Concomitant]
     Active Substance: MONTELUKAST SODIUM
  3. CRESTOR [Concomitant]
     Active Substance: ROSUVASTATIN CALCIUM
  4. SERTRALINE [Concomitant]
     Active Substance: SERTRALINE HYDROCHLORIDE
  5. BETAXOLOL [Concomitant]
     Active Substance: BETAXOLOL
  6. CALCIUM + VITAMIN D (LEKOVIT CA) [Concomitant]
     Active Substance: CALCIUM\VITAMIN D
  7. OTEZLA [Suspect]
     Active Substance: APREMILAST
     Indication: PSORIATIC ARTHROPATHY
     Route: 048
     Dates: start: 201407
  8. HYDROCODONE/APAP (VICODIN) [Concomitant]

REACTIONS (1)
  - Psoriasis [None]

NARRATIVE: CASE EVENT DATE: 2014
